FAERS Safety Report 4562792-0 (Version None)
Quarter: 2005Q1

REPORT INFORMATION
  Report Type: 
  Country: None (occurrence: None)
  Receive Date: 20050121
  Receipt Date: 20050111
  Transmission Date: 20050727
  Serious: Yes (Death)
  Sender: FDA-Public Use
  Company Number: 2005009536

PATIENT
  Age: 56 Year
  Sex: Female

DRUGS (2)
  1. IRINOTECAN HCL [Suspect]
     Indication: GASTRIC CANCER
     Dosage: 60 MG INTRAVENOUS
     Route: 042
     Dates: start: 20041224, end: 20041224
  2. PACLITAXEL [Suspect]
     Indication: GASTRIC CANCER
     Dosage: 60 MG INTRAVENOUS
     Route: 042
     Dates: start: 20041224, end: 20041224

REACTIONS (2)
  - BLOOD PRESSURE DECREASED [None]
  - RENAL FAILURE ACUTE [None]
